FAERS Safety Report 14286880 (Version 2)
Quarter: 2018Q1

REPORT INFORMATION
  Report Type: Report from Study
  Country: CA (occurrence: CA)
  Receive Date: 20171214
  Receipt Date: 20180222
  Transmission Date: 20180509
  Serious: Yes (Death, Hospitalization)
  Sender: FDA-Public Use
  Company Number: CA-IPSEN BIOPHARMACEUTICALS, INC.-2017-15560

PATIENT
  Sex: Male

DRUGS (1)
  1. DYSPORT [Suspect]
     Active Substance: ABOBOTULINUMTOXINA
     Indication: MUSCLE SPASTICITY
     Dosage: 500 UNITS
     Route: 030
     Dates: start: 20171107, end: 20171107

REACTIONS (4)
  - Malaise [Unknown]
  - Subarachnoid haemorrhage [Fatal]
  - Hypophagia [Unknown]
  - Fall [Fatal]

NARRATIVE: CASE EVENT DATE: 2017
